FAERS Safety Report 14900292 (Version 1)
Quarter: 2018Q2

REPORT INFORMATION
  Report Type: Spontaneous
  Country: DE (occurrence: DE)
  Receive Date: 20180516
  Receipt Date: 20180516
  Transmission Date: 20180711
  Serious: Yes (Other)
  Sender: FDA-Public Use
  Company Number: DE-DRREDDYS-GER/GER/18/0098885

PATIENT
  Age: 36 Year
  Sex: Female
  Weight: 62 kg

DRUGS (2)
  1. FEMIBION [Concomitant]
     Active Substance: VITAMINS
     Indication: PROPHYLAXIS OF NEURAL TUBE DEFECT
     Route: 048
     Dates: start: 20161101, end: 20170724
  2. QUETIAPINE. [Suspect]
     Active Substance: QUETIAPINE
     Indication: DEPRESSION
     Dosage: 300 (MG/D)/ 150 MG/D RETARDED AND 150 MG/D NON-RETARDED
     Route: 048
     Dates: start: 20161101, end: 20170724

REACTIONS (2)
  - Exposure during pregnancy [Recovered/Resolved]
  - Gestational diabetes [Recovered/Resolved]
